FAERS Safety Report 6618412-4 (Version None)
Quarter: 2010Q1

REPORT INFORMATION
  Report Type: 
  Country: None (occurrence: None)
  Receive Date: 20100308
  Receipt Date: 20100223
  Transmission Date: 20100710
  Serious: Yes (Hospitalization)
  Sender: FDA-Public Use
  Company Number: B0636956A

PATIENT
  Sex: Male

DRUGS (17)
  1. MELPHALAN [Suspect]
     Indication: MULTIPLE MYELOMA
     Route: 048
     Dates: start: 20100105, end: 20100109
  2. THALIDOMIDE [Suspect]
     Indication: MULTIPLE MYELOMA
     Route: 048
     Dates: start: 20100105
  3. PREDNISONE [Suspect]
     Indication: MULTIPLE MYELOMA
     Dates: start: 20100105, end: 20100109
  4. ENDONE [Concomitant]
     Indication: BACK PAIN
  5. COLOXYL WITH SENNA [Concomitant]
     Indication: CONSTIPATION
  6. OMEPRAZOLE [Concomitant]
     Indication: PROPHYLAXIS
  7. THYROXIN [Concomitant]
     Indication: DRUG USE FOR UNKNOWN INDICATION
  8. UNKNOWN DRUG [Concomitant]
  9. MOVICOL [Concomitant]
     Indication: CONSTIPATION
  10. DIFLUCAN [Concomitant]
     Indication: DRUG USE FOR UNKNOWN INDICATION
  11. ASPIRIN [Concomitant]
     Indication: DRUG USE FOR UNKNOWN INDICATION
  12. MYCOSTATIN [Concomitant]
  13. OXYCODONE HCL [Concomitant]
     Indication: DRUG USE FOR UNKNOWN INDICATION
  14. METOCLOPRAMIDE [Concomitant]
     Indication: DRUG USE FOR UNKNOWN INDICATION
  15. CLEXANE [Concomitant]
  16. PAMIDRONATE DISODIUM [Concomitant]
     Indication: PAIN
  17. OXYCODONE HCL [Concomitant]
     Indication: PAIN

REACTIONS (8)
  - BACK PAIN [None]
  - CONFUSIONAL STATE [None]
  - DYSURIA [None]
  - INTERVERTEBRAL DISC DISORDER [None]
  - NAUSEA [None]
  - OEDEMA PERIPHERAL [None]
  - PYREXIA [None]
  - STAPHYLOCOCCAL SEPSIS [None]
